FAERS Safety Report 9856963 (Version 6)
Quarter: 2014Q3

REPORT INFORMATION
  Report Type: Spontaneous
  Country: US (occurrence: None)
  Receive Date: 20140128
  Receipt Date: 20140701
  Transmission Date: 20150326
  Serious: Yes (Other)
  Sender: FDA-Public Use
  Company Number: ADR-2014-00115

PATIENT
  Age: 59 Year
  Sex: Female

DRUGS (2)
  1. BACLOFEN. [Suspect]
     Active Substance: BACLOFEN
     Indication: BACK PAIN
  2. MORPHINE [Suspect]
     Active Substance: MORPHINE
     Indication: BACK PAIN

REACTIONS (5)
  - Drug level increased [None]
  - Device battery issue [None]
  - Device occlusion [None]
  - Device malfunction [None]
  - Device electrical finding [None]
